FAERS Safety Report 5854190-4 (Version None)
Quarter: 2008Q3

REPORT INFORMATION
  Report Type: 
  Country: None (occurrence: None)
  Receive Date: 20080822
  Receipt Date: 20080820
  Transmission Date: 20090109
  Serious: Yes (Death)
  Sender: FDA-Public Use
  Company Number: US-TEVA-175841USA

PATIENT
  Age: 17 Day
  Sex: Male

DRUGS (5)
  1. ALBUTEROL [Suspect]
  2. PSEUDOEPHEDRINE HCL [Suspect]
  3. DEXTROMETHORPHAN [Suspect]
  4. BROMPHENIRAMINE [Suspect]
  5. PREDNISONE TAB [Suspect]

REACTIONS (1)
  - PNEUMONIA [None]
